FAERS Safety Report 5218117-0 (Version None)
Quarter: 2007Q1

REPORT INFORMATION
  Report Type: 
  Country: None (occurrence: None)
  Receive Date: 20070124
  Receipt Date: 20070117
  Transmission Date: 20070707
  Serious: Yes (Other)
  Sender: FDA-Public Use
  Company Number: CN-MERCK-0612CHN00016

PATIENT
  Sex: Female

DRUGS (1)
  1. PROPECIA [Suspect]
     Indication: ALOPECIA
     Route: 065
     Dates: start: 20060901, end: 20061201

REACTIONS (3)
  - ABORTION INDUCED [None]
  - DRUG EXPOSURE DURING PREGNANCY [None]
  - TRANSMISSION OF DRUG VIA SEMEN [None]
